FAERS Safety Report 25152952 (Version 2)
Quarter: 2025Q2

REPORT INFORMATION
  Report Type: Spontaneous
  Country: US (occurrence: US)
  Receive Date: 20250403
  Receipt Date: 20250530
  Transmission Date: 20250717
  Serious: No
  Sender: SANOFI AVENTIS
  Company Number: US-SA-2025SA093385

PATIENT
  Age: 30 Year
  Sex: Male

DRUGS (2)
  1. DUPIXENT [Suspect]
     Active Substance: DUPILUMAB
     Indication: Dermatitis atopic
     Route: 058
     Dates: start: 202502, end: 202502
  2. DUPIXENT [Suspect]
     Active Substance: DUPILUMAB
     Dosage: 300 MG, QOW
     Route: 058
     Dates: start: 2025

REACTIONS (7)
  - Eyelid margin crusting [Recovering/Resolving]
  - Eye discharge [Recovering/Resolving]
  - Condition aggravated [Recovering/Resolving]
  - Ocular hyperaemia [Recovering/Resolving]
  - Eye inflammation [Recovering/Resolving]
  - Eye pruritus [Unknown]
  - Conjunctivitis [Recovering/Resolving]

NARRATIVE: CASE EVENT DATE: 20250101
